FAERS Safety Report 12136572 (Version 1)
Quarter: 2016Q1

REPORT INFORMATION
  Report Type: Spontaneous
  Country: US (occurrence: US)
  Receive Date: 20160302
  Receipt Date: 20160302
  Transmission Date: 20160526
  Serious: No
  Sender: FDA-Public Use
  Company Number: US-HORIZON-DUE-0032-2016

PATIENT
  Age: 67 Year
  Sex: Male

DRUGS (2)
  1. DUEXIS [Suspect]
     Active Substance: FAMOTIDINE\IBUPROFEN
     Indication: INFLAMMATION
     Dosage: 1-3 TIMES PER DAY, USUALLY HE TOOK IT TWICE A DAY.
  2. PROTONIX [Concomitant]
     Active Substance: PANTOPRAZOLE SODIUM
     Indication: PRODUCT USED FOR UNKNOWN INDICATION

REACTIONS (2)
  - Intentional product misuse [Unknown]
  - Off label use [Unknown]
